FAERS Safety Report 8544321 (Version 4)
Quarter: 2012Q4

REPORT INFORMATION
  Report Type: 
  Country: ZA (occurrence: ZA)
  Receive Date: 20120503
  Receipt Date: 20121129
  Transmission Date: 20130627
  Serious: Yes (Other)
  Sender: FDA-Public Use
  Company Number: ZA-BAYER-2012-040618

PATIENT
  Age: 24 Year
  Sex: Female

DRUGS (1)
  1. MIRENA [Suspect]
     Indication: CONTRACEPTION
     Dosage: 20 mcg/24hr, CONT
     Route: 015
     Dates: start: 20100720, end: 20120425

REACTIONS (6)
  - Uterine perforation [None]
  - Genital haemorrhage [None]
  - Device breakage [None]
  - Complication of device removal [None]
  - Painful defaecation [None]
  - Pain [None]
